FAERS Safety Report 14290342 (Version 2)
Quarter: 2018Q1

REPORT INFORMATION
  Report Type: Spontaneous
  Country: ZA (occurrence: ZA)
  Receive Date: 20171215
  Receipt Date: 20180103
  Transmission Date: 20180509
  Serious: Yes (Hospitalization)
  Sender: FDA-Public Use
  Company Number: ZA-NOVOPROD-576156

PATIENT
  Age: 67 Year
  Sex: Female
  Weight: 65 kg

DRUGS (2)
  1. VAGIFEM [Suspect]
     Active Substance: ESTRADIOL
     Indication: HOT FLUSH
     Dosage: UNK
     Route: 067
  2. ESTROFEM [Suspect]
     Active Substance: ESTRADIOL CYPIONATE
     Indication: HOT FLUSH
     Dosage: 2 MG
     Route: 048

REACTIONS (2)
  - Right ventricular failure [Recovered/Resolved]
  - Emphysema [Recovered/Resolved]
